FAERS Safety Report 15515503 (Version 5)
Quarter: 2019Q4

REPORT INFORMATION
  Report Type: Spontaneous
  Country: US (occurrence: US)
  Receive Date: 20181017
  Receipt Date: 20191001
  Transmission Date: 20200122
  Serious: No
  Sender: FDA-Public Use
  Company Number: US-HTU-2018US017586

PATIENT
  Sex: Female

DRUGS (3)
  1. VALCHLOR [Suspect]
     Active Substance: MECHLORETHAMINE
     Dosage: THIN FILM, NIGHTLY, IF NO IRRITATION
     Route: 061
  2. VALCHLOR [Suspect]
     Active Substance: MECHLORETHAMINE
     Dosage: THIN FILM, EVERY OTHER NIGHT, FOR TWO WEEKS
     Route: 061
  3. VALCHLOR [Suspect]
     Active Substance: MECHLORETHAMINE
     Indication: CUTANEOUS T-CELL LYMPHOMA
     Dosage: UNK, UNKNOWN
     Route: 061
     Dates: start: 20180827

REACTIONS (8)
  - Application site vesicles [Not Recovered/Not Resolved]
  - Haemorrhage [Unknown]
  - Alopecia [Unknown]
  - Intentional dose omission [Unknown]
  - Application site irritation [Not Recovered/Not Resolved]
  - Skin irritation [Unknown]
  - Application site erythema [Not Recovered/Not Resolved]
  - Rash [Unknown]
